FAERS Safety Report 19072196 (Version 1)
Quarter: 2021Q1

REPORT INFORMATION
  Report Type: Spontaneous
  Country: JP (occurrence: JP)
  Receive Date: 20210330
  Receipt Date: 20210330
  Transmission Date: 20210420
  Serious: Yes (Other)
  Sender: FDA-Public Use
  Company Number: JP-PFIZER INC-2021291300

PATIENT
  Age: 65 Year
  Sex: Male

DRUGS (2)
  1. RITUXIMAB. [Suspect]
     Active Substance: RITUXIMAB
     Indication: EXTRANODAL MARGINAL ZONE B-CELL LYMPHOMA (MALT TYPE)
     Dosage: FOUR COURSES MONOTHERAPY
  2. RITUXIMAB. [Suspect]
     Active Substance: RITUXIMAB
     Dosage: ANOTHER FOUR COURSES AS THE SECOND?LINE THERAPY

REACTIONS (1)
  - Enterocolitis [Recovered/Resolved]
